FAERS Safety Report 7078497-0 (Version None)
Quarter: 2010Q4

REPORT INFORMATION
  Report Type: 
  Country: None (occurrence: None)
  Receive Date: 20101102
  Receipt Date: 20101026
  Transmission Date: 20110411
  Serious: Yes (Death, Other)
  Sender: FDA-Public Use
  Company Number: PHHY2010IE66392

PATIENT
  Sex: Male

DRUGS (7)
  1. RASILEZ [Suspect]
     Indication: HYPERTENSION
     Route: 048
  2. LANOXIN [Concomitant]
  3. LIPITOR [Concomitant]
  4. ALDACTONE [Concomitant]
  5. DIOVAN [Concomitant]
  6. WARFARIN [Concomitant]
  7. NOVOMIX [Concomitant]

REACTIONS (3)
  - DIZZINESS [None]
  - RENAL FAILURE CHRONIC [None]
  - SEPSIS [None]
